FAERS Safety Report 9779471 (Version 1)
Quarter: 2013Q4

REPORT INFORMATION
  Report Type: Spontaneous
  Country: CA (occurrence: CA)
  Receive Date: 20131223
  Receipt Date: 20131223
  Transmission Date: 20140711
  Serious: Yes (Other)
  Sender: FDA-Public Use
  Company Number: CA-B.I. PHARMACEUTICALS,INC./RIDGEFIELD-2013-BI-42713CN

PATIENT
  Age: 78 Year
  Sex: Male
  Weight: 90 kg

DRUGS (4)
  1. PRADAX [Suspect]
     Dosage: 300 MG
     Route: 048
  2. LUMIGAN [Suspect]
     Dosage: FORMULATION- SOLUTION OPHTHALMIC, 1 DROPS
     Route: 048
  3. METOPROLOL [Suspect]
     Dosage: 50 MG
     Route: 048
  4. VALSARTAN [Suspect]
     Dosage: 80 MG
     Route: 048

REACTIONS (2)
  - Atrial fibrillation [Not Recovered/Not Resolved]
  - Rash [Not Recovered/Not Resolved]
